FAERS Safety Report 19421734 (Version 1)
Quarter: 2021Q2

REPORT INFORMATION
  Report Type: Not Available
  Country: None (occurrence: None)
  Receive Date: 20210615
  Receipt Date: 20210615
  Transmission Date: 20210717
  Serious: Yes (Hospitalization, Other)
  Sender: FDA-Public Use
  Company Number: US-AKORN-168320

PATIENT
  Age: 13 Year
  Sex: Female

DRUGS (1)
  1. FERROUS SULFATE ELIXIR [Suspect]
     Active Substance: FERROUS SULFATE

REACTIONS (6)
  - Metabolic acidosis [Recovered/Resolved]
  - Intentional overdose [None]
  - Depressed level of consciousness [Recovered/Resolved]
  - Renal failure [Not Recovered/Not Resolved]
  - Hypoglycaemia [Recovered/Resolved]
  - Hepatic failure [Recovered/Resolved]
